FAERS Safety Report 21088164 (Version 1)
Quarter: 2022Q3

REPORT INFORMATION
  Report Type: Spontaneous
  Country: US (occurrence: None)
  Receive Date: 20220715
  Receipt Date: 20220715
  Transmission Date: 20221027
  Serious: No
  Sender: FDA-Public Use
  Company Number: 2022A223376

PATIENT
  Age: 30627 Day
  Sex: Female
  Weight: 55.3 kg

DRUGS (1)
  1. SYMBICORT [Suspect]
     Active Substance: BUDESONIDE\FORMOTEROL FUMARATE DIHYDRATE
     Indication: Ill-defined disorder
     Dosage: 160MCG/4.5MCG SYMBICORT INHALER 2 PUFFS, TWO TIMES A DAY
     Route: 055

REACTIONS (2)
  - Aphonia [Recovered/Resolved]
  - Product dose omission issue [Unknown]

NARRATIVE: CASE EVENT DATE: 20220614
